FAERS Safety Report 9346030 (Version 1)
Quarter: 2013Q2

REPORT INFORMATION
  Report Type: Spontaneous
  Country: SE (occurrence: SE)
  Receive Date: 20130613
  Receipt Date: 20130613
  Transmission Date: 20140414
  Serious: Yes (Life-Threatening, Hospitalization, Other)
  Sender: FDA-Public Use
  Company Number: SE-ELI_LILLY_AND_COMPANY-SE201306001439

PATIENT
  Sex: Female

DRUGS (8)
  1. ZYPREXA [Suspect]
     Dosage: 2.5 MG, UNKNOWN
     Route: 065
     Dates: start: 20090505, end: 201207
  2. ABILIFY [Concomitant]
     Dosage: 5 MG, UNKNOWN
     Route: 065
     Dates: start: 20090505, end: 201207
  3. ZOLPIDEM [Concomitant]
     Dosage: 1 DF, UNKNOWN
     Route: 065
     Dates: start: 20090505, end: 201207
  4. SERTRALIN [Concomitant]
     Dosage: 1 DF, UNKNOWN
     Route: 065
     Dates: start: 20090505, end: 201207
  5. MIRTAZAPIN [Concomitant]
     Dosage: 1 DF, UNKNOWN
     Route: 065
     Dates: start: 20090505, end: 201207
  6. PROPAVAN [Concomitant]
     Dosage: 25 MG, UNKNOWN
     Route: 065
     Dates: start: 20090505, end: 201207
  7. NOZINAN [Concomitant]
     Dosage: 5 MG, UNKNOWN
     Route: 065
     Dates: start: 20090505, end: 201207
  8. KODEIN [Concomitant]
     Dosage: 1 DF, UNKNOWN
     Route: 065
     Dates: start: 20090505, end: 201207

REACTIONS (4)
  - Pulse absent [Recovered/Resolved]
  - Condition aggravated [Not Recovered/Not Resolved]
  - Weight increased [Not Recovered/Not Resolved]
  - Blood pressure fluctuation [Not Recovered/Not Resolved]
